FAERS Safety Report 7822973-7 (Version None)
Quarter: 2011Q4

REPORT INFORMATION
  Report Type: 
  Country: None (occurrence: None)
  Receive Date: 20111018
  Receipt Date: 20101220
  Transmission Date: 20120403
  Serious: No
  Sender: FDA-Public Use
  Company Number: US-ASTRAZENECA-2010SE59961

PATIENT
  Age: 85 Year
  Sex: Female

DRUGS (6)
  1. HEART PILL [Concomitant]
  2. COUMADIN [Concomitant]
  3. ALBUTEROL [Concomitant]
  4. VENTOLIN [Concomitant]
  5. SYMBICORT [Suspect]
     Indication: CHRONIC OBSTRUCTIVE PULMONARY DISEASE
     Dosage: TWO PUFFS, TWO TIMES A DAY
     Route: 055
     Dates: start: 20101201
  6. STOMACH PILL [Concomitant]

REACTIONS (1)
  - PNEUMONIA [None]
